FAERS Safety Report 8576221-3 (Version None)
Quarter: 2012Q3

REPORT INFORMATION
  Report Type: 
  Country: None (occurrence: None)
  Receive Date: 20120807
  Receipt Date: 20120801
  Transmission Date: 20120928
  Serious: Yes (Hospitalization)
  Sender: FDA-Public Use
  Company Number: US-FRI-1000037524

PATIENT
  Sex: Female

DRUGS (1)
  1. VIIBRYD [Suspect]
     Route: 048

REACTIONS (2)
  - MANIA [None]
  - ANXIETY [None]
